FAERS Safety Report 17719830 (Version 1)
Quarter: 2020Q2

REPORT INFORMATION
  Report Type: Spontaneous
  Country: CN (occurrence: CN)
  Receive Date: 20200428
  Receipt Date: 20200428
  Transmission Date: 20200714
  Serious: Yes (Other)
  Sender: FDA-Public Use
  Company Number: CN-ROCHE-2588000

PATIENT
  Age: 55 Year
  Sex: Female

DRUGS (3)
  1. CYCLOPHOSPHAMIDE. [Concomitant]
     Active Substance: CYCLOPHOSPHAMIDE
     Indication: BREAST CANCER
     Route: 065
     Dates: start: 201809, end: 201811
  2. HERCEPTIN [Suspect]
     Active Substance: TRASTUZUMAB
     Indication: BREAST CANCER
     Route: 065
     Dates: start: 201901
  3. EPIRUBICIN [Concomitant]
     Active Substance: EPIRUBICIN
     Indication: BREAST CANCER
     Route: 065
     Dates: start: 201809, end: 201811

REACTIONS (8)
  - Pneumonia [Unknown]
  - Hepatic calcification [Unknown]
  - Arteriosclerosis coronary artery [Unknown]
  - Drug ineffective [Unknown]
  - Bronchiectasis [Unknown]
  - Palmar-plantar erythrodysaesthesia syndrome [Unknown]
  - Left ventricular enlargement [Unknown]
  - Cholelithiasis [Unknown]
